FAERS Safety Report 20912540 (Version 1)
Quarter: 2022Q2

REPORT INFORMATION
  Report Type: Spontaneous
  Country: FR (occurrence: FR)
  Receive Date: 20220603
  Receipt Date: 20220603
  Transmission Date: 20220721
  Serious: Yes (Hospitalization)
  Sender: FDA-Public Use
  Company Number: None

PATIENT
  Age: 87 Year
  Sex: Female
  Weight: 60 kg

DRUGS (4)
  1. PERINDOPRIL [Suspect]
     Active Substance: PERINDOPRIL
     Indication: Hypertension
     Dosage: 10MG, FREQUENCY TIME 1DAYS
     Route: 048
     Dates: end: 20220426
  2. VERAPAMIL HYDROCHLORIDE [Suspect]
     Active Substance: VERAPAMIL HYDROCHLORIDE
     Indication: Hypertension
     Dosage: LC, 2DF, FREQUENCY TIME 1DAYS
     Route: 048
     Dates: end: 20220426
  3. FUROSEMIDE [Suspect]
     Active Substance: FUROSEMIDE
     Indication: Cardiac failure
     Dosage: VARIABLE BETWEEN 120MG AND 40MG PER DAY. 40MG, FREQUENCY TIME 1DAYS, DURATION 11DAYS
     Route: 048
     Dates: start: 20220415, end: 20220426
  4. FLUINDIONE [Suspect]
     Active Substance: FLUINDIONE
     Indication: Atrial fibrillation
     Dosage: 20MG, FREQUENCY TIME 1DAYS
     Route: 048
     Dates: end: 20220426

REACTIONS (2)
  - Acute kidney injury [Not Recovered/Not Resolved]
  - Melaena [Not Recovered/Not Resolved]

NARRATIVE: CASE EVENT DATE: 20220426
